FAERS Safety Report 5731277-8 (Version None)
Quarter: 2008Q2

REPORT INFORMATION
  Report Type: 
  Country: None (occurrence: None)
  Receive Date: 20080505
  Receipt Date: 20080422
  Transmission Date: 20081010
  Serious: Yes (Death)
  Sender: FDA-Public Use
  Company Number: 20085079

PATIENT
  Age: 43 Year
  Sex: Female
  Weight: 54 kg

DRUGS (4)
  1. LIORESAL [Suspect]
     Indication: MUSCLE SPASTICITY
     Dosage: 296 MCG, DAILY, INTRATHECAL
     Route: 037
  2. DANTRIUM [Concomitant]
  3. CERCINE [Concomitant]
  4. PAXIL [Concomitant]

REACTIONS (1)
  - COMPLETED SUICIDE [None]
